FAERS Safety Report 7178580-5 (Version None)
Quarter: 2010Q4

REPORT INFORMATION
  Report Type: 
  Country: None (occurrence: None)
  Receive Date: 20101221
  Receipt Date: 20101214
  Transmission Date: 20110411
  Serious: Yes (Hospitalization)
  Sender: FDA-Public Use
  Company Number: US-BIOGENIDEC-2010BI041713

PATIENT
  Age: 54 Year
  Sex: Female

DRUGS (2)
  1. AVONEX [Suspect]
     Indication: MULTIPLE SCLEROSIS
     Route: 030
     Dates: start: 20101108
  2. AVONEX [Suspect]
     Route: 030
     Dates: start: 20050322

REACTIONS (2)
  - ARTHRITIS [None]
  - GASTRIC ULCER [None]
